FAERS Safety Report 9267712 (Version 1)
Quarter: 2013Q2

REPORT INFORMATION
  Report Type: Spontaneous
  Country: FR (occurrence: FR)
  Receive Date: 20130502
  Receipt Date: 20130502
  Transmission Date: 20140414
  Serious: Yes (Hospitalization)
  Sender: FDA-Public Use
  Company Number: FR-PFIZER INC-2013130746

PATIENT
  Age: 67 Year
  Sex: Male

DRUGS (15)
  1. TAHOR [Suspect]
     Dosage: 40 MG, 1X/DAY
     Route: 048
     Dates: end: 20130214
  2. PERINDOPRIL [Suspect]
     Dosage: 2 MG, 1X/DAY
     Route: 048
     Dates: start: 20121221
  3. PERINDOPRIL [Suspect]
     Dosage: 4 MG, 1X/DAY, IN THE MORNING
     Route: 048
     Dates: end: 20130214
  4. PERINDOPRIL [Suspect]
     Dosage: 2 MG, 1X/DAY, IN THE EVENING
     Dates: end: 20130214
  5. DEPAMIDE [Suspect]
     Dosage: 300 MG, 2X/DAY
     Route: 048
     Dates: start: 20130114, end: 20130207
  6. KEPPRA [Suspect]
     Dosage: 750 MG, 2X/DAY
     Route: 048
  7. FOLIC ACID [Concomitant]
     Dosage: 5 MG, 2X/DAY
  8. AVLOCARDYL [Concomitant]
     Dosage: 40 MG, 2X/DAY
  9. CLOPIDOGREL [Concomitant]
     Dosage: 1 DF, 1X/DAY
  10. DAFALGAN [Concomitant]
     Dosage: 1 G, 3X/DAY
  11. LOXEN [Concomitant]
     Dosage: 1 DF, 1X/DAY
  12. MOVICOL [Concomitant]
     Dosage: 1 DF, 1X/DAY
  13. RISPERDAL [Concomitant]
     Dosage: 0.25 MG, 1X/DAY
  14. VITAMIN B12 [Concomitant]
  15. SERESTA [Concomitant]
     Dosage: 50 MG, AS NEEDED

REACTIONS (3)
  - Pancreatitis [Recovered/Resolved]
  - Pancytopenia [Unknown]
  - Vitamin B12 deficiency [Unknown]
